FAERS Safety Report 9230519 (Version 8)
Quarter: 2013Q3

REPORT INFORMATION
  Report Type: Report from Study
  Country: DE (occurrence: DE)
  Receive Date: 20130415
  Receipt Date: 20130905
  Transmission Date: 20140515
  Serious: Yes (Hospitalization, Other)
  Sender: FDA-Public Use
  Company Number: DE-BAYER-2013-043058

PATIENT
  Sex: Male
  Weight: 71 kg

DRUGS (2)
  1. REGORAFENIB [Suspect]
     Indication: COLON CANCER
     Dosage: 4 X 40 MG
     Route: 048
     Dates: start: 20130313, end: 20130320
  2. REGORAFENIB [Suspect]
     Indication: METASTASES TO LIVER

REACTIONS (3)
  - Cholecystitis [Recovered/Resolved]
  - Pancreatitis [Recovered/Resolved]
  - Pancreatitis [Not Recovered/Not Resolved]
